FAERS Safety Report 15792789 (Version 3)
Quarter: 2019Q1

REPORT INFORMATION
  Report Type: Spontaneous
  Country: JP (occurrence: JP)
  Receive Date: 20190107
  Receipt Date: 20190213
  Transmission Date: 20190417
  Serious: Yes (Life-Threatening, Hospitalization)
  Sender: FDA-Public Use
  Company Number: JP-TAIHO ONCOLOGY  INC-JPTT180662

PATIENT
  Age: 81 Year
  Sex: Male
  Weight: 58.2 kg

DRUGS (6)
  1. LIXIANA OD [Suspect]
     Active Substance: EDOXABAN TOSYLATE
     Indication: VENOUS THROMBOSIS LIMB
     Route: 048
     Dates: start: 20180713, end: 20190110
  2. LONSURF [Suspect]
     Active Substance: TIPIRACIL HYDROCHLORIDE\TRIFLURIDINE
     Indication: COLON CANCER METASTATIC
     Dosage: ON DAYS 1-5 AND 8-12 OF EACH 28-DAY CYCLE, CYCLES 1-3
     Route: 048
     Dates: start: 20181008, end: 20181214
  3. ALDACTONE A [Suspect]
     Active Substance: SPIRONOLACTONE
     Indication: CARDIAC FAILURE
     Route: 048
     Dates: start: 201603, end: 20181221
  4. DAIKENCHUTO [Suspect]
     Active Substance: HERBALS
     Indication: POSTOPERATIVE ILEUS
     Route: 048
     Dates: start: 20180621, end: 20181221
  5. MOSAPRIDE CITRATE HYDRATE [Suspect]
     Active Substance: MOSAPRIDE CITRATE DIHYDRATE
     Indication: POSTOPERATIVE ILEUS
     Route: 048
     Dates: start: 20180613, end: 20181221
  6. BAYASPIRIN [Suspect]
     Active Substance: ASPIRIN
     Indication: PRODUCT USED FOR UNKNOWN INDICATION
     Route: 048
     Dates: start: 201603, end: 20181221

REACTIONS (9)
  - Dehydration [Unknown]
  - Disseminated intravascular coagulation [Unknown]
  - Intestinal obstruction [Recovering/Resolving]
  - Septic shock [Recovered/Resolved]
  - Pancytopenia [Recovering/Resolving]
  - Acute kidney injury [Recovered/Resolved]
  - Hepatic function abnormal [Recovering/Resolving]
  - Diarrhoea [Not Recovered/Not Resolved]
  - Pneumonia aspiration [Not Recovered/Not Resolved]

NARRATIVE: CASE EVENT DATE: 20181220
